FAERS Safety Report 8228718-3 (Version None)
Quarter: 2012Q1

REPORT INFORMATION
  Report Type: 
  Country: None (occurrence: None)
  Receive Date: 20120322
  Receipt Date: 20120313
  Transmission Date: 20120608
  Serious: Yes (Hospitalization)
  Sender: FDA-Public Use
  Company Number: DE-ASTRAZENECA-2012SE17327

PATIENT

DRUGS (1)
  1. SYMBICORT [Suspect]
     Dosage: 320/9 UNKNOWN FREQUENCY
     Route: 055

REACTIONS (1)
  - RIB FRACTURE [None]
